FAERS Safety Report 19929828 (Version 2)
Quarter: 2021Q4

REPORT INFORMATION
  Report Type: Spontaneous
  Country: CA (occurrence: CA)
  Receive Date: 20211007
  Receipt Date: 20211210
  Transmission Date: 20220303
  Serious: Yes (Life-Threatening, Hospitalization, Other)
  Sender: FDA-Public Use
  Company Number: None

PATIENT
  Age: 69 Year
  Sex: Male

DRUGS (11)
  1. PREDNISOLONE [Suspect]
     Active Substance: PREDNISOLONE
     Indication: Hormone-refractory prostate cancer
     Dosage: 5 MILLIGRAM, BID
     Route: 065
  2. PREDNISOLONE [Suspect]
     Active Substance: PREDNISOLONE
     Indication: Metastases to bone
  3. MYCOPHENOLATE MOFETIL [Suspect]
     Active Substance: MYCOPHENOLATE MOFETIL
     Indication: Immune-mediated myocarditis
     Dosage: 1 GRAM, BID
     Route: 048
  4. MYCOPHENOLATE MOFETIL [Suspect]
     Active Substance: MYCOPHENOLATE MOFETIL
     Indication: Cardiogenic shock
  5. PEMBROLIZUMAB [Suspect]
     Active Substance: PEMBROLIZUMAB
     Indication: Hormone-refractory prostate cancer
     Dosage: 200 MILLIGRAM, CYCLICAL, RECEIVED 2 CYCLES OF PEMBROLIZUMAB 10 AND 4 WEEKS BEFORE ADMISSION
     Route: 042
  6. PEMBROLIZUMAB [Suspect]
     Active Substance: PEMBROLIZUMAB
     Indication: Metastases to bone
  7. METHYLPREDNISOLONE [Suspect]
     Active Substance: METHYLPREDNISOLONE
     Indication: Immune-mediated myocarditis
     Dosage: 125 MILLIGRAM DAILY
     Route: 042
  8. METHYLPREDNISOLONE [Suspect]
     Active Substance: METHYLPREDNISOLONE
     Indication: Cardiogenic shock
     Dosage: 1 GRAM DAILY, (SUBSEQUENTLY ESCALATED TO A PULSE DOSE OF 1 G DAILY FOR 3 DAYS)
     Route: 042
  9. ABIRATERONE [Concomitant]
     Active Substance: ABIRATERONE
     Indication: Hormone-refractory prostate cancer
     Dosage: 1000 MILLIGRAM PER DAY
     Route: 065
  10. ABIRATERONE [Concomitant]
     Active Substance: ABIRATERONE
     Indication: Metastases to bone
     Dosage: 750 MILLIGRAM, DAILY FOR THE SECOND CYCLE
     Route: 065
  11. AMIODARONE [Concomitant]
     Active Substance: AMIODARONE
     Indication: Ventricular tachycardia
     Dosage: UNK
     Route: 042

REACTIONS (11)
  - Gastrointestinal erosion [Unknown]
  - Respiratory failure [Unknown]
  - Anaemia [Unknown]
  - Somnolence [Unknown]
  - Duodenal ulcer [Recovered/Resolved]
  - Oesophagitis [Unknown]
  - Gastritis [Unknown]
  - Gastric ulcer [Recovered/Resolved]
  - Gastrointestinal haemorrhage [Unknown]
  - Cytomegalovirus viraemia [Unknown]
  - Drug ineffective for unapproved indication [Unknown]
